FAERS Safety Report 21851636 (Version 1)
Quarter: 2023Q1

REPORT INFORMATION
  Report Type: Spontaneous
  Country: US (occurrence: US)
  Receive Date: 20230112
  Receipt Date: 20230112
  Transmission Date: 20230417
  Serious: Yes (Death, Other)
  Sender: FDA-Public Use
  Company Number: US-drreddys-LIT/USA/23/0159414

PATIENT
  Age: 23 Year
  Sex: Female

DRUGS (4)
  1. DOXORUBICIN HYDROCHLORIDE [Suspect]
     Active Substance: DOXORUBICIN HYDROCHLORIDE
     Indication: Neuroendocrine carcinoma metastatic
  2. VINCRISTINE [Suspect]
     Active Substance: VINCRISTINE
     Indication: Neuroendocrine carcinoma metastatic
  3. CYCLOPHOSPHAMIDE [Suspect]
     Active Substance: CYCLOPHOSPHAMIDE
     Indication: Neuroendocrine carcinoma metastatic
  4. MITOMYCIN C [Concomitant]
     Active Substance: MITOMYCIN
     Indication: Colorectal adenocarcinoma

REACTIONS (3)
  - Neuroendocrine carcinoma metastatic [Fatal]
  - Haematotoxicity [Unknown]
  - Product use in unapproved indication [Unknown]
